FAERS Safety Report 14385355 (Version 2)
Quarter: 2018Q1

REPORT INFORMATION
  Report Type: Spontaneous
  Country: US (occurrence: US)
  Receive Date: 20180115
  Receipt Date: 20180115
  Transmission Date: 20180509
  Serious: Yes (Other)
  Sender: FDA-Public Use
  Company Number: US-SA-2016SA228853

PATIENT
  Sex: Female

DRUGS (1)
  1. TAXOTERE [Suspect]
     Active Substance: DOCETAXEL
     Indication: BREAST CANCER FEMALE
     Route: 042

REACTIONS (6)
  - Injury [Unknown]
  - Discomfort [Unknown]
  - Emotional distress [Unknown]
  - Alopecia [Unknown]
  - Anxiety [Unknown]
  - Impaired quality of life [Unknown]
